FAERS Safety Report 17231205 (Version 2)
Quarter: 2020Q1

REPORT INFORMATION
  Report Type: Spontaneous
  Country: US (occurrence: US)
  Receive Date: 20200103
  Receipt Date: 20200108
  Transmission Date: 20200409
  Serious: No
  Sender: FDA-Public Use
  Company Number: US-PFIZER INC-2019562023

PATIENT
  Age: 48 Year
  Sex: Female
  Weight: 91.63 kg

DRUGS (10)
  1. PERCOCET [Concomitant]
     Active Substance: ACETAMINOPHEN\OXYCODONE HYDROCHLORIDE
     Indication: PAIN
     Dosage: UNK, 3X/DAY (10MG\325MG TABLET, PRESCRIBED 3 TIMES A DAY)
  2. KLONOPIN [Concomitant]
     Active Substance: CLONAZEPAM
     Indication: PANIC ATTACK
     Dosage: 2 MG, AS NEEDED
  3. PROMETHAZINE [Concomitant]
     Active Substance: PROMETHAZINE HYDROCHLORIDE
     Indication: PAIN
  4. CELEXA [Concomitant]
     Active Substance: CITALOPRAM HYDROBROMIDE
     Indication: DEPRESSION
     Dosage: 20 MG, 3X/DAY
  5. NALBUPHINE HYDROCHLORIDE. [Suspect]
     Active Substance: NALBUPHINE HYDROCHLORIDE
     Indication: MIGRAINE
     Dosage: 1 ML, 2X/DAY (10MG/ML INJECTION INTO THE ARM OR HIP)
  6. NALBUPHINE HYDROCHLORIDE. [Suspect]
     Active Substance: NALBUPHINE HYDROCHLORIDE
     Indication: FIBROMYALGIA
  7. NALBUPHINE HYDROCHLORIDE. [Suspect]
     Active Substance: NALBUPHINE HYDROCHLORIDE
     Indication: PAIN
  8. NALBUPHINE HYDROCHLORIDE. [Suspect]
     Active Substance: NALBUPHINE HYDROCHLORIDE
     Indication: FATIGUE
  9. PROMETHAZINE [Concomitant]
     Active Substance: PROMETHAZINE HYDROCHLORIDE
     Indication: NAUSEA
     Dosage: 25 MG, 3 TIMES A WEEK
  10. DILAUDID [Concomitant]
     Active Substance: HYDROMORPHONE HYDROCHLORIDE
     Indication: PAIN
     Dosage: 2 MG, 2X/DAY

REACTIONS (4)
  - Hypotension [Unknown]
  - Condition aggravated [Unknown]
  - Blood pressure increased [Unknown]
  - Vomiting [Unknown]
